FAERS Safety Report 8458759-2 (Version None)
Quarter: 2012Q2

REPORT INFORMATION
  Report Type: 
  Country: None (occurrence: None)
  Receive Date: 20120622
  Receipt Date: 20120612
  Transmission Date: 20120825
  Serious: Yes (Hospitalization, Other)
  Sender: FDA-Public Use
  Company Number: US-ELI_LILLY_AND_COMPANY-US201206004682

PATIENT
  Sex: Female

DRUGS (1)
  1. FORTEO [Suspect]

REACTIONS (9)
  - GENERAL PHYSICAL HEALTH DETERIORATION [None]
  - HAEMATEMESIS [None]
  - MALAISE [None]
  - FOOD AVERSION [None]
  - HOSPITALISATION [None]
  - NAUSEA [None]
  - NONSPECIFIC REACTION [None]
  - ABNORMAL LOSS OF WEIGHT [None]
  - VISION BLURRED [None]
